FAERS Safety Report 20809021 (Version 6)
Quarter: 2022Q3

REPORT INFORMATION
  Report Type: Report from Study
  Country: US (occurrence: US)
  Receive Date: 20220510
  Receipt Date: 20220928
  Transmission Date: 20221026
  Serious: Yes (Hospitalization)
  Sender: FDA-Public Use
  Company Number: US-EXELIXIS-CABO-22051656

PATIENT
  Sex: Male

DRUGS (18)
  1. CABOMETYX [Suspect]
     Active Substance: CABOZANTINIB S-MALATE
     Indication: Renal cancer
     Dosage: 40 MG, QD
     Route: 048
     Dates: start: 202102
  2. CABOMETYX [Suspect]
     Active Substance: CABOZANTINIB S-MALATE
     Indication: Hepatic lesion
     Dosage: 40 MG, QD
     Route: 048
     Dates: start: 20220311, end: 20220512
  3. CABOMETYX [Suspect]
     Active Substance: CABOZANTINIB S-MALATE
     Dosage: 40 MG
     Route: 048
     Dates: end: 202206
  4. CABOMETYX [Suspect]
     Active Substance: CABOZANTINIB S-MALATE
     Dosage: 40 MG
     Route: 048
  5. OPDIVO [Suspect]
     Active Substance: NIVOLUMAB
     Indication: Renal cancer
     Dosage: UNK UNK, Q3WEEKS
  6. OPDIVO [Suspect]
     Active Substance: NIVOLUMAB
     Indication: Hepatic lesion
  7. YERVOY [Suspect]
     Active Substance: IPILIMUMAB
     Indication: Renal cancer
     Dosage: UNK, Q3WEEKS
  8. YERVOY [Suspect]
     Active Substance: IPILIMUMAB
     Indication: Hepatic lesion
  9. COVID-19 vaccine [Concomitant]
     Dosage: UNK
     Dates: start: 202102
  10. COVID-19 vaccine [Concomitant]
     Dosage: UNK
     Dates: start: 202103
  11. ELIQUIS [Concomitant]
     Active Substance: APIXABAN
     Dosage: UNK
  12. ATORVASTATIN [Concomitant]
     Active Substance: ATORVASTATIN
     Dosage: UNK
  13. COREG [Concomitant]
     Active Substance: CARVEDILOL
     Dosage: UNK
  14. PREDNISONE [Concomitant]
     Active Substance: PREDNISONE
     Dosage: UNK
  15. CALCIUM [Concomitant]
     Active Substance: CALCIUM
     Dosage: UNK
  16. SYNTHROID [Concomitant]
     Active Substance: LEVOTHYROXINE SODIUM
     Dosage: UNK
  17. METOPROLOL [Concomitant]
     Active Substance: METOPROLOL
     Dosage: UNK
  18. AMLODIPINE [Concomitant]
     Active Substance: AMLODIPINE BESYLATE
     Dosage: UNK

REACTIONS (16)
  - Renal failure [Unknown]
  - Retinal tear [Unknown]
  - Blindness [Unknown]
  - Cerebrovascular accident [Unknown]
  - Rectal haemorrhage [Unknown]
  - Eye haemorrhage [Unknown]
  - Hypertension [Unknown]
  - Thrombosis [Unknown]
  - Infection [Unknown]
  - Amnesia [Unknown]
  - Asthenia [Unknown]
  - Dizziness [Unknown]
  - Taste disorder [Unknown]
  - Rash [Unknown]
  - Hepatic lesion [Unknown]
  - SARS-CoV-2 test positive [Unknown]
